FAERS Safety Report 13133279 (Version 1)
Quarter: 2017Q1

REPORT INFORMATION
  Report Type: Spontaneous
  Country: US (occurrence: US)
  Receive Date: 20170119
  Receipt Date: 20170119
  Transmission Date: 20170428
  Serious: Yes (Hospitalization)
  Sender: FDA-Public Use
  Company Number: None

PATIENT
  Age: 69 Year
  Sex: Male
  Weight: 103.4 kg

DRUGS (2)
  1. TAXOTERE [Suspect]
     Active Substance: DOCETAXEL
     Dates: end: 20170110
  2. PREDNISONE. [Suspect]
     Active Substance: PREDNISONE
     Dates: end: 20170115

REACTIONS (2)
  - Appendicitis perforated [None]
  - Abdominal pain [None]

NARRATIVE: CASE EVENT DATE: 20170115
